FAERS Safety Report 19198981 (Version 1)
Quarter: 2021Q2

REPORT INFORMATION
  Report Type: Spontaneous
  Country: US (occurrence: US)
  Receive Date: 20210429
  Receipt Date: 20210429
  Transmission Date: 20210717
  Serious: No
  Sender: FDA-Public Use
  Company Number: US-ROCHE-2582519

PATIENT

DRUGS (1)
  1. KADCYLA [Suspect]
     Active Substance: ADO-TRASTUZUMAB EMTANSINE
     Indication: PRODUCT USED FOR UNKNOWN INDICATION
     Route: 065

REACTIONS (20)
  - Toothache [Unknown]
  - Headache [Recovered/Resolved]
  - Nausea [Recovered/Resolved]
  - Constipation [Recovering/Resolving]
  - Paraesthesia [Unknown]
  - Fatigue [Unknown]
  - Musculoskeletal pain [Unknown]
  - Skin ulcer [Unknown]
  - Taste disorder [Unknown]
  - Dry mouth [Unknown]
  - Somnolence [Unknown]
  - Feeling abnormal [Unknown]
  - Dyspepsia [Unknown]
  - Contusion [Unknown]
  - Back pain [Unknown]
  - Abdominal pain upper [Unknown]
  - Alopecia [Unknown]
  - Epistaxis [Unknown]
  - Pain in jaw [Unknown]
  - Oropharyngeal pain [Unknown]
